FAERS Safety Report 10270938 (Version 1)
Quarter: 2014Q3

REPORT INFORMATION
  Report Type: Spontaneous
  Country: BR (occurrence: BR)
  Receive Date: 20140701
  Receipt Date: 20140701
  Transmission Date: 20150326
  Serious: Yes (Death)
  Sender: FDA-Public Use
  Company Number: BR-GLAXOSMITHKLINE-B0999091A

PATIENT

DRUGS (1)
  1. REVOLADE [Suspect]
     Active Substance: ELTROMBOPAG
     Indication: BONE MARROW FAILURE
     Route: 048

REACTIONS (7)
  - Bone marrow failure [Fatal]
  - Platelet count decreased [Fatal]
  - Prescribed overdose [Unknown]
  - Haemorrhagic stroke [Fatal]
  - Myalgia [Recovered/Resolved]
  - Central nervous system lesion [Unknown]
  - Off label use [Unknown]
